FAERS Safety Report 13659229 (Version 1)
Quarter: 2017Q2

REPORT INFORMATION
  Report Type: Spontaneous
  Country: US (occurrence: US)
  Receive Date: 20170616
  Receipt Date: 20170616
  Transmission Date: 20170830
  Serious: Yes (Hospitalization)
  Sender: FDA-Public Use
  Company Number: None

PATIENT
  Age: 74 Year
  Sex: Female
  Weight: 71.1 kg

DRUGS (11)
  1. APA [Concomitant]
  2. HYDRALAZINE [Concomitant]
     Active Substance: HYDRALAZINE HYDROCHLORIDE
  3. FE [Concomitant]
     Active Substance: IRON
  4. CLARITIN [Concomitant]
     Active Substance: LORATADINE
  5. PROLOSEC [Concomitant]
  6. ECOTRIN [Concomitant]
     Active Substance: ASPIRIN
  7. LAMICTAL [Concomitant]
     Active Substance: LAMOTRIGINE
  8. KLOR-CON [Suspect]
     Active Substance: POTASSIUM CHLORIDE
     Dosage: 50MEQ CR DAILY PO RECENT
     Route: 048
  9. SYNTHROID [Concomitant]
     Active Substance: LEVOTHYROXINE SODIUM
  10. REMERON [Concomitant]
     Active Substance: MIRTAZAPINE
  11. NTG [Concomitant]
     Active Substance: NITROGLYCERIN

REACTIONS (3)
  - Disease recurrence [None]
  - Hypoglycaemia [None]
  - Hyperkalaemia [None]

NARRATIVE: CASE EVENT DATE: 20170505
